FAERS Safety Report 15636852 (Version 1)
Quarter: 2018Q4

REPORT INFORMATION
  Report Type: Spontaneous
  Country: US (occurrence: US)
  Receive Date: 20181120
  Receipt Date: 20181120
  Transmission Date: 20190205
  Serious: No
  Sender: FDA-Public Use
  Company Number: US-GLAXOSMITHKLINE-US2018208074

PATIENT
  Age: 51 Year
  Sex: Female
  Weight: 59 kg

DRUGS (1)
  1. EQUATE NICOTINE [Suspect]
     Active Substance: NICOTINE
     Indication: PRODUCT USED FOR UNKNOWN INDICATION
     Dosage: 21 MG, EVERYDAY
     Dates: end: 20181107

REACTIONS (3)
  - Panic attack [Unknown]
  - Palpitations [Unknown]
  - Nausea [Unknown]

NARRATIVE: CASE EVENT DATE: 20181108
